FAERS Safety Report 9333387 (Version 1)
Quarter: 2013Q2

REPORT INFORMATION
  Report Type: Spontaneous
  Country: DE (occurrence: DE)
  Receive Date: 20130606
  Receipt Date: 20130606
  Transmission Date: 20140414
  Serious: Yes (Other)
  Sender: FDA-Public Use
  Company Number: DE-TEVA-407647GER

PATIENT
  Sex: Female

DRUGS (1)
  1. AZILECT [Suspect]
     Dates: start: 2010

REACTIONS (1)
  - Hepatic cirrhosis [Unknown]
